FAERS Safety Report 10523188 (Version 3)
Quarter: 2015Q2

REPORT INFORMATION
  Report Type: Spontaneous
  Country: US (occurrence: US)
  Receive Date: 20141016
  Receipt Date: 20150427
  Transmission Date: 20150821
  Serious: Yes (Hospitalization, Other)
  Sender: FDA-Public Use
  Company Number: US-PFIZER INC-2014283273

PATIENT
  Age: 71 Year
  Sex: Female
  Weight: 57 kg

DRUGS (7)
  1. CELEBREX [Suspect]
     Active Substance: CELECOXIB
     Indication: PAIN
  2. SIMVASTATIN. [Concomitant]
     Active Substance: SIMVASTATIN
     Dosage: 20 MG, 1X/DAY
     Dates: end: 20140920
  3. AMLODIPINE BESILATE [Concomitant]
     Active Substance: AMLODIPINE BESYLATE
     Dosage: 5 MG, 1X/DAY
  4. CELEBREX [Suspect]
     Active Substance: CELECOXIB
     Indication: STRESS
     Dosage: 200 MG, 1X/DAY
     Dates: end: 20140920
  5. CELEBREX [Suspect]
     Active Substance: CELECOXIB
     Indication: ARTHRITIS
  6. CELEBREX [Suspect]
     Active Substance: CELECOXIB
     Indication: DEPRESSION
  7. COZAAR [Concomitant]
     Active Substance: LOSARTAN POTASSIUM
     Dosage: 100 MG, 1X/DAY

REACTIONS (5)
  - Dyspnoea [Unknown]
  - Feeling of body temperature change [Recovered/Resolved]
  - Asthenia [Recovered/Resolved]
  - Pallor [Recovered/Resolved]
  - Chest pain [Recovered/Resolved]

NARRATIVE: CASE EVENT DATE: 20140926
